FAERS Safety Report 21735886 (Version 1)
Quarter: 2022Q4

REPORT INFORMATION
  Report Type: Spontaneous
  Country: US (occurrence: US)
  Receive Date: 20221215
  Receipt Date: 20221215
  Transmission Date: 20230113
  Serious: Yes (Hospitalization)
  Sender: FDA-Public Use
  Company Number: US-009507513-2212USA005993

PATIENT
  Sex: Male

DRUGS (7)
  1. KEYTRUDA [Suspect]
     Active Substance: PEMBROLIZUMAB
     Dosage: 200 MG PER 3 WEEK
     Dates: start: 20221111
  2. OXALIPLATIN [Suspect]
     Active Substance: OXALIPLATIN
     Dosage: 135 MG PER 2 WEEKS
     Dates: start: 20221111
  3. FLUOROURACIL [Suspect]
     Active Substance: FLUOROURACIL
     Dosage: 3053 MG PER 2 WEEK
     Dates: start: 20221111
  4. LEUCOVORIN [Suspect]
     Active Substance: LEUCOVORIN
     Dosage: 636 MG PER 2 WEEK
     Dates: start: 20221111
  5. PANTOPRAZOLE [Concomitant]
     Active Substance: PANTOPRAZOLE
     Dosage: 40MG QD
     Route: 048
     Dates: start: 20221025
  6. MOSAPRIDE [Concomitant]
     Active Substance: MOSAPRIDE
     Dosage: 5MG TID
     Route: 048
     Dates: start: 20221130
  7. HERBALS [Concomitant]
     Active Substance: HERBALS
     Dosage: 30 MG TID
     Route: 048
     Dates: start: 20221103

REACTIONS (2)
  - Gastric hypomotility [Unknown]
  - Oesophagogastroduodenoscopy [Unknown]

NARRATIVE: CASE EVENT DATE: 20220101
